FAERS Safety Report 5076923-X (Version None)
Quarter: 2006Q3

REPORT INFORMATION
  Report Type: 
  Country: None (occurrence: None)
  Receive Date: 20060810
  Receipt Date: 20050926
  Transmission Date: 20061208
  Serious: Yes (Life-Threatening)
  Sender: FDA-Public Use
  Company Number: US-BAYER-200512018BWH

PATIENT
  Age: 32 Year
  Sex: Male

DRUGS (3)
  1. CIPRO IV [Suspect]
     Indication: ARTHRITIS BACTERIAL
     Route: 042
     Dates: start: 20050101
  2. CIPRO [Suspect]
     Indication: ARTHRITIS BACTERIAL
     Dosage: TOTAL DAILY DOSE: 1000 MG
     Route: 048
     Dates: start: 20050101
  3. NAPROXEN [Concomitant]
     Indication: PAIN

REACTIONS (9)
  - AGITATION [None]
  - ANXIETY [None]
  - DEPRESSION [None]
  - INSOMNIA [None]
  - MENTAL DISORDER [None]
  - NIGHTMARE [None]
  - PANIC ATTACK [None]
  - PARAESTHESIA [None]
  - SUICIDAL IDEATION [None]
